FAERS Safety Report 6168984-1 (Version None)
Quarter: 2009Q2

REPORT INFORMATION
  Report Type: 
  Country: None (occurrence: None)
  Receive Date: 20090424
  Receipt Date: 20090424
  Transmission Date: 20091009
  Serious: Yes (Hospitalization)
  Sender: FDA-Public Use
  Company Number: None

PATIENT
  Age: 66 Year
  Sex: Female

DRUGS (2)
  1. IFOSFAMIDE [Suspect]
     Dosage: IFOSFAMIDE
     Dates: start: 20080707, end: 20080707
  2. CISPLATIN [Suspect]
     Dosage: CISPLATIN

REACTIONS (5)
  - NAUSEA [None]
  - NERVOUS SYSTEM DISORDER [None]
  - NEUROTOXICITY [None]
  - TREMOR [None]
  - VOMITING [None]
